FAERS Safety Report 24726311 (Version 1)
Quarter: 2024Q4

REPORT INFORMATION
  Report Type: Spontaneous
  Country: US (occurrence: None)
  Receive Date: 20241211
  Receipt Date: 20241211
  Transmission Date: 20250114
  Serious: Yes (Life-Threatening, Hospitalization)
  Sender: Public
  Company Number: None

PATIENT
  Age: 66 Year
  Sex: Male
  Weight: 69 kg

DRUGS (1)
  1. PACLITAXEL [Suspect]
     Active Substance: PACLITAXEL
     Indication: Oesophageal carcinoma
     Dosage: OTHER FREQUENCY : ONCE;?
     Route: 058
     Dates: start: 20230828, end: 20230828

REACTIONS (4)
  - Respiratory depression [None]
  - Nausea [None]
  - Infusion related reaction [None]
  - Oxygen saturation decreased [None]

NARRATIVE: CASE EVENT DATE: 20230828
